FAERS Safety Report 6215025-3 (Version None)
Quarter: 2009Q2

REPORT INFORMATION
  Report Type: 
  Country: None (occurrence: None)
  Receive Date: 20090604
  Receipt Date: 20081010
  Transmission Date: 20091009
  Serious: No
  Sender: FDA-Public Use
  Company Number: US-ASTRAZENECA-2008UW22303

PATIENT
  Age: 65 Year
  Sex: Female
  Weight: 68 kg

DRUGS (2)
  1. PRILOSEC [Suspect]
     Route: 048
  2. ZYRTEC [Suspect]

REACTIONS (2)
  - DIZZINESS [None]
  - MEDICATION ERROR [None]
